FAERS Safety Report 6233918-8 (Version None)
Quarter: 2009Q2

REPORT INFORMATION
  Report Type: 
  Country: None (occurrence: None)
  Receive Date: 20090618
  Receipt Date: 20090608
  Transmission Date: 20091009
  Serious: Yes (Other)
  Sender: FDA-Public Use
  Company Number: PHHY2008MX31046

PATIENT
  Age: 70 Year
  Sex: Female

DRUGS (2)
  1. STALEVO 100 [Suspect]
     Indication: PARKINSON'S DISEASE
     Dosage: 3 TABS(L100/C25/E200 MG)/DAY
     Route: 048
     Dates: start: 20060101, end: 20081001
  2. STALEVO 100 [Suspect]
     Dosage: 2 TABS (L100/C25/E200 MG)/DAY
     Route: 048
     Dates: start: 20081001, end: 20081001

REACTIONS (2)
  - DYSKINESIA [None]
  - INCOHERENT [None]
